FAERS Safety Report 8060265-4 (Version None)
Quarter: 2012Q1

REPORT INFORMATION
  Report Type: 
  Country: None (occurrence: None)
  Receive Date: 20120119
  Receipt Date: 20120119
  Transmission Date: 20120608
  Serious: Yes (Hospitalization)
  Sender: FDA-Public Use
  Company Number: None

PATIENT
  Age: 71 Year
  Sex: Male
  Weight: 100 kg

DRUGS (29)
  1. COUMADIN [Concomitant]
  2. FISH OIL [Concomitant]
  3. DIGOXIN [Suspect]
     Indication: CORONARY ARTERY DISEASE
     Dosage: 0.125MG DAILY PO CHRONIC
     Route: 048
  4. METOLAZONE [Concomitant]
  5. TYLENOL ARTH [Concomitant]
  6. VICODIN [Concomitant]
  7. SPIRONOLACTONE [Concomitant]
  8. K+ [Concomitant]
  9. LASIX [Concomitant]
  10. ASPIRIN [Concomitant]
  11. JANUVIA [Concomitant]
  12. MELATONIN [Concomitant]
  13. RESVERATROL [Concomitant]
  14. GARLIC [Concomitant]
  15. LOSARTAN POTASSIUM [Concomitant]
  16. FEXOFENADINE [Concomitant]
  17. MAGNESIUM SULFATE [Concomitant]
  18. FENOFIBRATE [Concomitant]
  19. TOPROL-XL [Concomitant]
  20. GINGEREST [Concomitant]
  21. SAW PALMETTO [Concomitant]
  22. GABAPENTIN [Concomitant]
  23. ULORIC [Concomitant]
  24. SIMVASTATIN [Concomitant]
  25. VIT C, D [Concomitant]
  26. POTASSIUM CHLORIDE [Concomitant]
  27. GLUCOSAMINE [Concomitant]
  28. SUPER B [Concomitant]
  29. SENNA [Concomitant]

REACTIONS (4)
  - HYPOKALAEMIA [None]
  - CARDIOACTIVE DRUG LEVEL INCREASED [None]
  - HYPONATRAEMIA [None]
  - TOXICITY TO VARIOUS AGENTS [None]
